FAERS Safety Report 4736908-7 (Version None)
Quarter: 2005Q3

REPORT INFORMATION
  Report Type: 
  Country: None (occurrence: None)
  Receive Date: 20050808
  Receipt Date: 20050728
  Transmission Date: 20060218
  Serious: Yes (Disabling)
  Sender: FDA-Public Use
  Company Number: GB-SANOFI-SYNTHELABO-A01200505221

PATIENT
  Age: 42 Year
  Sex: Female
  Weight: 76 kg

DRUGS (8)
  1. HYDROXYCHLOROQUINE SULFATE [Suspect]
     Route: 048
  2. CYCLOPHOSPHAMIDE [Suspect]
     Indication: SYSTEMIC LUPUS ERYTHEMATOSUS
     Dosage: UNKNOWN
     Route: 042
     Dates: start: 20050201
  3. ASPIRIN [Concomitant]
     Route: 048
  4. PREDNISOLONE [Concomitant]
     Dosage: REDUCING DOSE (NOS)
  5. RABEPRAZOLE SODIUM [Concomitant]
  6. GABAPENTIN [Concomitant]
  7. RISEDRONATE [Concomitant]
     Dosage: UNKNOWN
  8. CALCICHEW [Concomitant]
     Dosage: UNK

REACTIONS (1)
  - OSCILLOPSIA [None]
